FAERS Safety Report 14373185 (Version 2)
Quarter: 2018Q2

REPORT INFORMATION
  Report Type: Report from Study
  Country: US (occurrence: US)
  Receive Date: 20180110
  Receipt Date: 20180419
  Transmission Date: 20180711
  Serious: Yes (Death, Other)
  Sender: FDA-Public Use
  Company Number: US-REGENERON PHARMACEUTICALS, INC.-2018-10389

PATIENT

DRUGS (2)
  1. EYLEA [Suspect]
     Active Substance: AFLIBERCEPT
     Dosage: LAST DOSE, OS, 2 MG, EVERY 7-8 WEEKS,
     Route: 031
     Dates: start: 20160616, end: 20160616
  2. EYLEA [Suspect]
     Active Substance: AFLIBERCEPT
     Indication: NEOVASCULAR AGE-RELATED MACULAR DEGENERATION
     Dosage: OS, 2 MG, EVERY 7-8 WEEKS
     Route: 031
     Dates: start: 20160101, end: 20160616

REACTIONS (1)
  - Death [Fatal]
